FAERS Safety Report 9551064 (Version 1)
Quarter: 2013Q3

REPORT INFORMATION
  Report Type: Spontaneous
  Country: GB (occurrence: GB)
  Receive Date: 20130925
  Receipt Date: 20130925
  Transmission Date: 20140515
  Serious: Yes (Hospitalization)
  Sender: FDA-Public Use
  Company Number: GB-AMGEN-GBRSP2013067079

PATIENT
  Age: 43 Year
  Sex: Female

DRUGS (4)
  1. ENBREL [Suspect]
     Indication: ANKYLOSING SPONDYLITIS
     Dosage: 50 MG, WEEKLY
     Route: 058
     Dates: start: 20110303, end: 20130128
  2. NITROFURANTOIN [Concomitant]
     Dosage: 50 MG, 4X/DAY
     Dates: start: 20100928
  3. CO-DYDRAMOL [Concomitant]
     Indication: PAIN
     Dosage: 4 DF, 4X/DAY
     Dates: start: 20100928
  4. AMOXICILLIN [Concomitant]
     Indication: LOWER RESPIRATORY TRACT INFECTION
     Dosage: 500 MG, 3X/DAY
     Dates: start: 20121024, end: 20121101

REACTIONS (6)
  - Inflammation [Recovered/Resolved]
  - Meningeal disorder [Recovered/Resolved]
  - Nausea [Recovered/Resolved]
  - Vomiting [Recovered/Resolved]
  - Weight decreased [Recovered/Resolved]
  - Hyperreflexia [Recovered/Resolved]
